FAERS Safety Report 8845240 (Version 2)
Quarter: 2012Q4

REPORT INFORMATION
  Report Type: 
  Country: DE (occurrence: JP)
  Receive Date: 20121017
  Receipt Date: 20121029
  Transmission Date: 20130627
  Serious: No
  Sender: FDA-Public Use
  Company Number: JP-BRISTOL-MYERS SQUIBB COMPANY-17043191

PATIENT
  Age: 66 Year
  Sex: Male

DRUGS (5)
  1. ERBITUX SOLN FOR INF 5MG/ML [Suspect]
     Indication: COLORECTAL CANCER
     Route: 041
     Dates: start: 20120925
  2. FAMOTIDINE [Concomitant]
     Indication: PREMEDICATION
  3. DECADRON [Concomitant]
     Indication: PREMEDICATION
  4. RESCALMIN [Concomitant]
     Indication: PREMEDICATION
  5. IRINOTECAN [Concomitant]
     Indication: COLORECTAL CANCER
     Route: 041
     Dates: start: 20120925

REACTIONS (1)
  - Infusion related reaction [Recovered/Resolved]
